FAERS Safety Report 7151455-3 (Version None)
Quarter: 2010Q4

REPORT INFORMATION
  Report Type: 
  Country: None (occurrence: None)
  Receive Date: 20101210
  Receipt Date: 20101130
  Transmission Date: 20110411
  Serious: Yes (Hospitalization)
  Sender: FDA-Public Use
  Company Number: MX-JNJFOC-20101201379

PATIENT
  Age: 3 Year
  Sex: Male
  Weight: 14.5 kg

DRUGS (3)
  1. CONCENTRATED TYLENOL INFANT DROPS [Suspect]
     Indication: PYREXIA
     Dosage: AMOUNT INGESTED WAS UNKNOWN
     Route: 048
  2. CONCENTRATED TYLENOL INFANT DROPS [Suspect]
     Indication: ACCIDENTAL EXPOSURE
     Dosage: AMOUNT INGESTED WAS UNKNOWN
     Route: 048
  3. AMBROXOL [Concomitant]
     Indication: PRODUCTIVE COUGH
     Route: 048

REACTIONS (2)
  - ACCIDENTAL DRUG INTAKE BY CHILD [None]
  - ACCIDENTAL OVERDOSE [None]
